FAERS Safety Report 5427460-1 (Version None)
Quarter: 2007Q3

REPORT INFORMATION
  Report Type: 
  Country: None (occurrence: None)
  Receive Date: 20070824
  Receipt Date: 20070824
  Transmission Date: 20080115
  Serious: Yes (Hospitalization, Other)
  Sender: FDA-Public Use
  Company Number: None

PATIENT
  Age: 83 Year
  Sex: Female
  Weight: 89.3586 kg

DRUGS (8)
  1. TYGACIL [Suspect]
     Indication: SEPSIS
     Dosage: 50MG BID IV
     Route: 042
     Dates: start: 20070715, end: 20070721
  2. ZOCOR [Suspect]
     Indication: DYSLIPIDAEMIA
     Dosage: 10MG DAILY PO
     Route: 048
     Dates: start: 20070710, end: 20070721
  3. TYLENOL (CAPLET) [Concomitant]
  4. ATENOLOL [Concomitant]
  5. LOVENOX [Concomitant]
  6. NIZORAL CREAM [Concomitant]
  7. COZAAR [Concomitant]
  8. THYROID TAB [Concomitant]

REACTIONS (1)
  - PANCREATITIS ACUTE [None]
